FAERS Safety Report 5712456-2 (Version None)
Quarter: 2008Q2

REPORT INFORMATION
  Report Type: 
  Country: None (occurrence: None)
  Receive Date: 20080422
  Receipt Date: 20080416
  Transmission Date: 20081010
  Serious: Yes (Death, Other)
  Sender: FDA-Public Use
  Company Number: US-BRISTOL-MYERS SQUIBB COMPANY-14088934

PATIENT
  Age: 6 Year
  Sex: Male

DRUGS (13)
  1. CARBOPLATIN [Suspect]
     Indication: BURKITT'S LYMPHOMA
     Route: 042
  2. CYCLOPHOSPHAMIDE [Suspect]
     Indication: BURKITT'S LYMPHOMA
  3. DOXORUBICIN HCL [Suspect]
     Indication: BURKITT'S LYMPHOMA
  4. ETOPOSIDE [Suspect]
     Indication: BURKITT'S LYMPHOMA
  5. IFOSFAMIDE [Suspect]
     Indication: BURKITT'S LYMPHOMA
  6. METHOTREXATE [Suspect]
     Indication: BURKITT'S LYMPHOMA
     Route: 037
  7. METHOTREXATE [Suspect]
     Indication: PROPHYLAXIS
     Route: 037
  8. VINCRISTINE SULFATE [Suspect]
     Indication: BURKITT'S LYMPHOMA
  9. CIDOFOVIR [Suspect]
     Indication: BURKITT'S LYMPHOMA
  10. RITUXIMAB [Suspect]
     Indication: BURKITT'S LYMPHOMA
  11. PREDNISONE [Suspect]
     Indication: BURKITT'S LYMPHOMA
  12. RADIOTHERAPY [Suspect]
     Indication: BURKITT'S LYMPHOMA
  13. CYCLOSPORINE [Suspect]
     Indication: PROPHYLAXIS

REACTIONS (2)
  - ENCEPHALOPATHY [None]
  - GRAFT VERSUS HOST DISEASE [None]
